FAERS Safety Report 20016641 (Version 1)
Quarter: 2021Q4

REPORT INFORMATION
  Report Type: Spontaneous
  Country: US (occurrence: None)
  Receive Date: 20211104
  Receipt Date: 20211104
  Transmission Date: 20220303
  Serious: Yes (Other)
  Sender: FDA-Public Use
  Company Number: None

PATIENT
  Age: 51 Year

DRUGS (9)
  1. HIZENTRA [Suspect]
     Active Substance: HUMAN IMMUNOGLOBULIN G
     Indication: Immunodeficiency common variable
     Dosage: FREQUENCY : WEEKLY;?
     Route: 058
     Dates: start: 20161103
  2. AZITHROMYCIN [Concomitant]
  3. Cetirzine-Pseudoephedrine [Concomitant]
  4. ESTRADIOL [Concomitant]
  5. FOLIC ACID [Concomitant]
  6. LEUPROLIDE [Concomitant]
     Active Substance: LEUPROLIDE
  7. LEVOTHYROXINE [Concomitant]
     Active Substance: LEVOTHYROXINE
  8. OMEPRAZOLE [Concomitant]
  9. progestrone micronized [Concomitant]

REACTIONS (6)
  - Hypersensitivity [None]
  - Erythema [None]
  - Inflammation [None]
  - Pruritus [None]
  - Skin warm [None]
  - Injection site reaction [None]

NARRATIVE: CASE EVENT DATE: 20211021
